FAERS Safety Report 8664288 (Version 2)
Quarter: 2013Q1

REPORT INFORMATION
  Report Type: Report from Study
  Country: CA (occurrence: CA)
  Receive Date: 20120713
  Receipt Date: 20130325
  Transmission Date: 20140127
  Serious: Yes (Hospitalization)
  Sender: FDA-Public Use
  Company Number: CA-ROCHE-1086753

PATIENT
  Age: 35 Year
  Sex: Female
  Weight: 49.9 kg

DRUGS (7)
  1. RITUXAN [Suspect]
     Indication: RHEUMATOID ARTHRITIS
     Route: 042
     Dates: start: 20111011
  2. SYNTHROID [Concomitant]
  3. CELEBREX [Concomitant]
  4. METHOTREXATE [Concomitant]
  5. DIPHENHYDRAMINE HCL [Concomitant]
     Route: 048
     Dates: start: 20111011
  6. ACETAMINOPHEN [Concomitant]
     Route: 048
     Dates: start: 20111011
  7. CELEBREX [Concomitant]
     Route: 042
     Dates: start: 20111011

REACTIONS (5)
  - Pyrexia [Unknown]
  - Oropharyngeal pain [Unknown]
  - Lymphadenopathy [Unknown]
  - Dehydration [Unknown]
  - Rash [Not Recovered/Not Resolved]
